FAERS Safety Report 12508523 (Version 1)
Quarter: 2016Q2

REPORT INFORMATION
  Report Type: Spontaneous
  Country: US (occurrence: US)
  Receive Date: 20160629
  Receipt Date: 20160629
  Transmission Date: 20160815
  Serious: No
  Sender: FDA-Public Use
  Company Number: US-PFIZER INC-2016293812

PATIENT
  Age: 55 Year
  Sex: Male

DRUGS (1)
  1. SUTENT [Suspect]
     Active Substance: SUNITINIB MALATE
     Indication: NEOPLASM MALIGNANT
     Dosage: 37.5 MG, CYCLIC (1 CAPSULE FOR 28 DAYS THAN STOP FOR 14 DAYS)
     Route: 048
     Dates: start: 20160203

REACTIONS (5)
  - Disease progression [Unknown]
  - Fatigue [Unknown]
  - Neoplasm malignant [Unknown]
  - Nausea [Unknown]
  - Diarrhoea [Unknown]
